FAERS Safety Report 7529001-1 (Version None)
Quarter: 2011Q2

REPORT INFORMATION
  Report Type: 
  Country: None (occurrence: None)
  Receive Date: 20110607
  Receipt Date: 20110601
  Transmission Date: 20111010
  Serious: Yes (Hospitalization)
  Sender: FDA-Public Use
  Company Number: SE-B.I. PHARMACEUTICALS,INC./RIDGEFIELD-2011-SW-00238SW

PATIENT
  Sex: Female

DRUGS (9)
  1. BETAPRED [Suspect]
     Indication: ASTHMA
     Dosage: DOSAGE REGIMENT: D
     Route: 048
     Dates: start: 20110401, end: 20110412
  2. BRICANYL [Concomitant]
  3. LEVOTHYROXINE SODIUM [Concomitant]
  4. RANITIDINE HCL [Concomitant]
  5. SERTRALIN [Concomitant]
  6. SINGULAIR [Concomitant]
  7. COMBIVENT [Suspect]
     Indication: ASTHMA
     Dosage: DOSINGE REGIMEN: D
     Dates: start: 20110401, end: 20110412
  8. SYMBICORT [Concomitant]
     Dosage: FORM: INHALATION POWDER
  9. ACETYLCYSTEINE [Concomitant]

REACTIONS (1)
  - PETIT MAL EPILEPSY [None]
